FAERS Safety Report 19321879 (Version 1)
Quarter: 2021Q2

REPORT INFORMATION
  Report Type: Other
  Country: CA (occurrence: CA)
  Receive Date: 20210528
  Receipt Date: 20210528
  Transmission Date: 20210717
  Serious: Yes (Hospitalization, Other)
  Sender: FDA-Public Use
  Company Number: CA-CELLTRION INC.-2021CA006837

PATIENT

DRUGS (10)
  1. RITUXIMAB (UNKNOWN) [Suspect]
     Active Substance: RITUXIMAB
     Indication: SYSTEMIC LUPUS ERYTHEMATOSUS
     Dosage: 600 MILLIGRAM, 1 EVERY 1 WEEK
     Route: 042
  2. PREDNISONE. [Concomitant]
     Active Substance: PREDNISONE
     Dosage: 20 MILLIGRAM, 2 EVERY 1 DAY
     Route: 048
  3. RITUXIMAB (UNKNOWN) [Suspect]
     Active Substance: RITUXIMAB
     Dosage: UNK
     Route: 042
  4. RITUXIMAB (UNKNOWN) [Suspect]
     Active Substance: RITUXIMAB
     Dosage: 800 MILLIGRAM
     Route: 042
  5. IRON [Concomitant]
     Active Substance: IRON
     Route: 048
  6. RITUXIMAB (UNKNOWN) [Suspect]
     Active Substance: RITUXIMAB
     Indication: IMMUNE THROMBOCYTOPENIA
     Dosage: 375 MG/M2, 1 EVERY 15 DAYS
     Route: 042
  7. AZATHIOPRINE. [Concomitant]
     Active Substance: AZATHIOPRINE
     Dosage: 50 MILLIGRAM, 2 EVERY 1 DAY
     Route: 048
  8. COZAAR [Concomitant]
     Active Substance: LOSARTAN POTASSIUM
     Dosage: 25 MILLIGRAM, 2 EVERY 1 DAY
     Route: 048
  9. HYDROXYCHLOROQUINE SULFATE. [Concomitant]
     Active Substance: HYDROXYCHLOROQUINE SULFATE
     Dosage: 300 MILLIGRAM, AS REQUIRED
     Route: 048
  10. CALCIUM [Concomitant]
     Active Substance: CALCIUM
     Route: 048

REACTIONS (13)
  - Pharyngeal swelling [Recovered/Resolved]
  - Therapy naive [Recovered/Resolved]
  - Off label use [Unknown]
  - Painful respiration [Recovered/Resolved]
  - Nausea [Recovered/Resolved]
  - Vomiting [Recovered/Resolved]
  - Chest pain [Recovered/Resolved]
  - Dysphagia [Recovered/Resolved]
  - Muscle tightness [Recovered/Resolved]
  - Diarrhoea [Recovered/Resolved]
  - Pain [Recovered/Resolved]
  - Seizure [Recovered/Resolved]
  - Urticaria [Recovered/Resolved]
